FAERS Safety Report 8816087 (Version 1)
Quarter: 2012Q4

REPORT INFORMATION
  Report Type: 
  Country: FR (occurrence: FR)
  Receive Date: 20120928
  Receipt Date: 20120928
  Transmission Date: 20130627
  Serious: Yes (Hospitalization)
  Sender: FDA-Public Use
  Company Number: FR-PFIZER INC-2012235767

PATIENT
  Age: 10 Year
  Sex: Female

DRUGS (2)
  1. ZOLOFT [Suspect]
     Indication: ANXIETY DISORDER
     Dosage: 25 mg, 1x/day
     Route: 048
     Dates: start: 201002, end: 201102
  2. ZOLOFT [Suspect]
     Indication: PHOBIA

REACTIONS (1)
  - Pulmonary arterial hypertension [Not Recovered/Not Resolved]
